FAERS Safety Report 8445938-3 (Version None)
Quarter: 2012Q2

REPORT INFORMATION
  Report Type: 
  Country: None (occurrence: None)
  Receive Date: 20120618
  Receipt Date: 20120607
  Transmission Date: 20120825
  Serious: Yes (Hospitalization, Other)
  Sender: FDA-Public Use
  Company Number: NL-BAXTER-2012BAX006371

PATIENT
  Sex: Male

DRUGS (24)
  1. PHYSIONEAL 40 GLUCOSE 3.86% W/V / 38.6 MG/ML [Suspect]
     Route: 033
     Dates: start: 20100916
  2. EXTRANEAL [Suspect]
     Route: 033
     Dates: start: 20120523
  3. ALFACALCIDOL [Concomitant]
     Route: 048
     Dates: start: 20110803
  4. ARANESP [Concomitant]
     Dosage: WEEKLY
     Route: 058
     Dates: start: 20120509
  5. FINASTERIDE [Concomitant]
     Route: 048
     Dates: start: 20120222
  6. SORBISTERIT [Concomitant]
     Dosage: DAILY
     Route: 003
     Dates: start: 20110223
  7. PHYSIONEAL 40 GLUCOSE 2.27% W/V / 22.7 MG/ML [Suspect]
     Route: 033
     Dates: start: 20100916
  8. TOLBUTAMIDE [Concomitant]
     Dosage: 250MG
     Route: 065
     Dates: start: 20120328
  9. CINACALCET HYDROCHLORIDE [Concomitant]
     Route: 048
     Dates: start: 20120328
  10. ACETYLSAL ACID W/ASCOR ACID /CAFFEI /GUAIFEN [Concomitant]
     Route: 048
     Dates: start: 20090325
  11. EXTRANEAL [Suspect]
     Route: 033
     Dates: start: 20100916, end: 20120514
  12. PHYSIONEAL 40 GLUCOSE 2.27% W/V / 22.7 MG/ML [Suspect]
  13. INHIBIN                            /00508201/ [Concomitant]
     Dosage: AS NEEDED
     Route: 048
     Dates: start: 20110618
  14. MAGNESIUM HYDROXIDE TAB [Concomitant]
     Route: 048
     Dates: start: 20110511
  15. OMEPRAZOLE [Concomitant]
     Route: 048
     Dates: start: 20090422
  16. MULTIVITAMIN PRO CAPD [Concomitant]
     Dosage: DAILY
     Route: 065
     Dates: start: 20080710
  17. PHYSIONEAL 40 GLUCOSE 3.86% W/V / 38.6 MG/ML [Suspect]
  18. CALCIUM CARBONATE [Concomitant]
     Dosage: 1.25 GM
     Route: 048
     Dates: start: 20120223
  19. LANTHANUM CARBONATE [Concomitant]
     Route: 048
     Dates: start: 20110905
  20. ETHANOL [Concomitant]
     Dosage: 90% W/GLYCEROL 85% FOUR TIMES DAILY
     Route: 003
     Dates: start: 20090905
  21. MUPIROCIN [Concomitant]
     Route: 003
     Dates: start: 20120514
  22. SIMVASTATIN [Concomitant]
     Route: 048
     Dates: start: 20120308
  23. FERROUS FUMARATE [Concomitant]
     Route: 048
     Dates: start: 20110224
  24. GABAPENTIN [Concomitant]
     Route: 048
     Dates: start: 20110114

REACTIONS (4)
  - PNEUMONIA [None]
  - UROSEPSIS [None]
  - PERITONITIS BACTERIAL [None]
  - NONINFECTIOUS PERITONITIS [None]
